FAERS Safety Report 17255501 (Version 2)
Quarter: 2020Q1

REPORT INFORMATION
  Report Type: Report from Study
  Country: US (occurrence: US)
  Receive Date: 20200110
  Receipt Date: 20200129
  Transmission Date: 20200409
  Serious: Yes (Other)
  Sender: FDA-Public Use
  Company Number: US-BIOGEN-2020BI00824136

PATIENT
  Sex: Female

DRUGS (1)
  1. TECFIDERA [Suspect]
     Active Substance: DIMETHYL FUMARATE
     Indication: MULTIPLE SCLEROSIS
     Route: 065
     Dates: start: 20181227

REACTIONS (5)
  - Feeling drunk [Unknown]
  - Feeling abnormal [Unknown]
  - Seizure [Not Recovered/Not Resolved]
  - Muscle spasms [Unknown]
  - Product dose omission [Unknown]
